FAERS Safety Report 11611799 (Version 1)
Quarter: 2015Q4

REPORT INFORMATION
  Report Type: Spontaneous
  Country: CH (occurrence: CH)
  Receive Date: 20151008
  Receipt Date: 20151008
  Transmission Date: 20160304
  Serious: Yes (Other)
  Sender: FDA-Public Use
  Company Number: CH-SUN PHARMACEUTICAL INDUSTRIES LTD-2015RR-104220

PATIENT

DRUGS (8)
  1. DULOXETINE. [Suspect]
     Active Substance: DULOXETINE
     Indication: POST-TRAUMATIC STRESS DISORDER
  2. SULPIRIDE [Suspect]
     Active Substance: SULPIRIDE
     Indication: MERYCISM
     Dosage: UP TO 200 MG
     Route: 065
  3. FLUPENTIXOLE [Suspect]
     Active Substance: FLUPENTIXOL
     Indication: MERYCISM
     Dosage: UP TO 7 MG
     Route: 065
  4. THIORIDAZINE [Suspect]
     Active Substance: THIORIDAZINE
     Indication: MERYCISM
     Dosage: UP TO 50 MG
     Route: 065
  5. OLANZAPINE. [Suspect]
     Active Substance: OLANZAPINE
     Indication: MERYCISM
     Dosage: UP TO 7.5 MG
     Route: 065
  6. MAPROTILINE [Suspect]
     Active Substance: MAPROTILINE
     Indication: POST-TRAUMATIC STRESS DISORDER
  7. DULOXETINE. [Suspect]
     Active Substance: DULOXETINE
     Indication: MAJOR DEPRESSION
     Dosage: UNK
     Route: 065
  8. MAPROTILINE [Suspect]
     Active Substance: MAPROTILINE
     Indication: MAJOR DEPRESSION
     Dosage: UNK
     Route: 065

REACTIONS (1)
  - Pathological gambling [Recovered/Resolved]
